FAERS Safety Report 21940647 (Version 1)
Quarter: 2023Q1

REPORT INFORMATION
  Report Type: Report from Study
  Country: US (occurrence: US)
  Receive Date: 20230201
  Receipt Date: 20230201
  Transmission Date: 20230418
  Serious: No
  Sender: FDA-Public Use
  Company Number: US-EXELIXIS-CABO-22052113

PATIENT
  Age: 54 Year
  Sex: Female

DRUGS (13)
  1. CABOMETYX [Suspect]
     Active Substance: CABOZANTINIB S-MALATE
     Indication: Breast cancer
     Dosage: 60 MG, QD
     Dates: start: 20220422
  2. CABOMETYX [Suspect]
     Active Substance: CABOZANTINIB S-MALATE
     Dosage: TOOK 1/2 TABLET OF 60MG
  3. CABOMETYX [Suspect]
     Active Substance: CABOZANTINIB S-MALATE
     Dosage: TOOK 1/2 TABLET OF 60MG
  4. VITAMIN C [Concomitant]
     Active Substance: ASCORBIC ACID
  5. VITAMIN D [Concomitant]
     Active Substance: VITAMIN D NOS
  6. VISCUM ALBUM FRUITING TOP [Concomitant]
     Active Substance: VISCUM ALBUM FRUITING TOP
  7. BROMOCRIPTINE [Concomitant]
     Active Substance: BROMOCRIPTINE
     Dosage: UNK
  8. DIETARY SUPPLEMENT\RESVERATROL [Concomitant]
     Active Substance: DIETARY SUPPLEMENT\RESVERATROL
     Dosage: UNK
  9. MELATONIN [Concomitant]
     Active Substance: MELATONIN
     Dosage: UNK
  10. Bromaline [Concomitant]
     Dosage: UNK
  11. CURCUMIN [Concomitant]
     Active Substance: CURCUMIN
     Dosage: UNK
  12. TURKEY TAIL MUSHROOM [Concomitant]
     Dosage: UNK
  13. WORMWOOD [Concomitant]
     Active Substance: WORMWOOD
     Dosage: UNK

REACTIONS (9)
  - Vision blurred [Recovering/Resolving]
  - Colitis [Not Recovered/Not Resolved]
  - Seroma [Recovered/Resolved]
  - Hepatic enzyme increased [Recovering/Resolving]
  - Stomatitis [Recovered/Resolved]
  - Red blood cell count decreased [Not Recovered/Not Resolved]
  - Wrong technique in product usage process [Unknown]
  - Off label use [Unknown]
  - Product dose omission issue [Unknown]

NARRATIVE: CASE EVENT DATE: 20220701
